FAERS Safety Report 18379958 (Version 4)
Quarter: 2020Q4

REPORT INFORMATION
  Report Type: Other
  Country: US (occurrence: US)
  Receive Date: 20201014
  Receipt Date: 20201219
  Transmission Date: 20210114
  Serious: Yes (Hospitalization)
  Sender: FDA-Public Use
  Company Number: US-ROCHE-2690380

PATIENT
  Age: 44 Year
  Sex: Female
  Weight: 97.16 kg

DRUGS (4)
  1. OCREVUS [Suspect]
     Active Substance: OCRELIZUMAB
     Indication: RELAPSING-REMITTING MULTIPLE SCLEROSIS
     Route: 042
     Dates: start: 201311
  2. ALLEGRA [Concomitant]
     Active Substance: FEXOFENADINE HYDROCHLORIDE
     Indication: SEASONAL ALLERGY
     Route: 048
     Dates: start: 201905
  3. OCREVUS [Suspect]
     Active Substance: OCRELIZUMAB
     Indication: MULTIPLE SCLEROSIS
     Dosage: LAST DOSE
     Route: 042
     Dates: start: 20201103
  4. SODIUM FLUORIDE. [Concomitant]
     Active Substance: SODIUM FLUORIDE

REACTIONS (5)
  - COVID-19 [Recovered/Resolved]
  - Drug hypersensitivity [Unknown]
  - Hypothyroidism [Unknown]
  - Attention deficit hyperactivity disorder [Unknown]
  - Pneumonia [Recovered/Resolved]

NARRATIVE: CASE EVENT DATE: 201709
